FAERS Safety Report 6913846-2 (Version None)
Quarter: 2010Q3

REPORT INFORMATION
  Report Type: 
  Country: None (occurrence: None)
  Receive Date: 20100809
  Receipt Date: 20100726
  Transmission Date: 20110219
  Serious: Yes (Hospitalization)
  Sender: FDA-Public Use
  Company Number: BR-ROCHE-715483

PATIENT
  Sex: Male

DRUGS (4)
  1. MYCOPHENOLATE MOFETIL [Suspect]
     Route: 065
     Dates: start: 20091204, end: 20100706
  2. CYCLOSPORINE [Suspect]
     Route: 048
     Dates: start: 20091204, end: 20100715
  3. PREDNISONE [Suspect]
     Route: 065
     Dates: start: 20091204
  4. PREDNISONE [Suspect]
     Route: 065
     Dates: start: 20100706

REACTIONS (2)
  - LYMPHOCYTE MORPHOLOGY ABNORMAL [None]
  - URINARY TRACT INFECTION [None]
